FAERS Safety Report 5866130-2 (Version None)
Quarter: 2008Q3

REPORT INFORMATION
  Report Type: 
  Country: None (occurrence: None)
  Receive Date: 20080829
  Receipt Date: 20080819
  Transmission Date: 20090109
  Serious: Yes (Other)
  Sender: FDA-Public Use
  Company Number: PE-PFIZER INC-2008068349

PATIENT
  Sex: Female

DRUGS (4)
  1. XANAX XR [Suspect]
     Indication: PANIC DISORDER
     Dosage: DAILY DOSE:1MG
  2. XANAX XR [Suspect]
     Indication: DEPRESSION
  3. ESCITALOPRAM [Suspect]
     Indication: DEPRESSION
     Dates: start: 20080601, end: 20080701
  4. ESCITALOPRAM [Suspect]
     Indication: PANIC DISORDER

REACTIONS (6)
  - ABDOMINAL PAIN [None]
  - ASTHENIA [None]
  - BACK PAIN [None]
  - HEPATIC PAIN [None]
  - JAUNDICE [None]
  - RENAL PAIN [None]
